FAERS Safety Report 14264607 (Version 1)
Quarter: 2017Q4

REPORT INFORMATION
  Report Type: Spontaneous
  Country: US (occurrence: US)
  Receive Date: 20171208
  Receipt Date: 20171208
  Transmission Date: 20180321
  Serious: No
  Sender: FDA-Public Use
  Company Number: US-TEVA-2017-US-830636

PATIENT

DRUGS (1)
  1. MICONAZOLE 7 [Suspect]
     Active Substance: MICONAZOLE NITRATE

REACTIONS (2)
  - Product container issue [Unknown]
  - Burning sensation [Unknown]
